FAERS Safety Report 23377476 (Version 1)
Quarter: 2024Q1

REPORT INFORMATION
  Report Type: Spontaneous
  Country: CN (occurrence: None)
  Receive Date: 20240108
  Receipt Date: 20240108
  Transmission Date: 20240409
  Serious: Yes (Other)
  Sender: FDA-Public Use
  Company Number: CN-ROCHE-3485058

PATIENT
  Age: 52 Year
  Sex: Male

DRUGS (5)
  1. ALECENSA [Suspect]
     Active Substance: ALECTINIB HYDROCHLORIDE
     Indication: Adenocarcinoma
     Route: 065
  2. ENSARTINIB [Concomitant]
     Active Substance: ENSARTINIB
     Indication: Adenocarcinoma
  3. ETOPOSIDE [Concomitant]
     Active Substance: ETOPOSIDE
     Indication: Adenocarcinoma
  4. CISPLATIN [Concomitant]
     Active Substance: CISPLATIN
     Indication: Adenocarcinoma
  5. LORLATINIB [Concomitant]
     Active Substance: LORLATINIB
     Indication: Adenocarcinoma
     Route: 048

REACTIONS (6)
  - Small cell lung cancer [Unknown]
  - Drug resistance [Unknown]
  - Chest discomfort [Unknown]
  - Drug ineffective [Unknown]
  - Pneumothorax [Recovering/Resolving]
  - Pleural effusion [Recovering/Resolving]
